FAERS Safety Report 11341598 (Version 1)
Quarter: 2015Q3

REPORT INFORMATION
  Report Type: Spontaneous
  Country: US (occurrence: None)
  Receive Date: 20150803
  Receipt Date: 20150803
  Transmission Date: 20151125
  Serious: Yes (Other)
  Sender: FDA-Public Use
  Company Number: None

PATIENT
  Age: 56 Year
  Sex: Female
  Weight: 77.11 kg

DRUGS (2)
  1. FENTANYL TRANSDERMAL SYSTEM [Suspect]
     Active Substance: FENTANYL
     Indication: PAIN
     Dosage: PATCHES; APPLIED AS MEDICATED PATCH TO SKIN; Q48H
     Route: 061
     Dates: start: 20150729, end: 20150802
  2. FENTANYL TRANSDERMAL SYSTEM [Suspect]
     Active Substance: FENTANYL
     Indication: DRUG TOLERANCE
     Dosage: PATCHES; APPLIED AS MEDICATED PATCH TO SKIN; Q48H
     Route: 061
     Dates: start: 20150729, end: 20150802

REACTIONS (8)
  - Application site irritation [None]
  - Application site vesicles [None]
  - Application site pain [None]
  - Application site exfoliation [None]
  - Product substitution issue [None]
  - Application site erythema [None]
  - Application site burn [None]
  - Burns second degree [None]

NARRATIVE: CASE EVENT DATE: 20150801
